FAERS Safety Report 18802712 (Version 1)
Quarter: 2021Q1

REPORT INFORMATION
  Report Type: Spontaneous
  Country: US (occurrence: US)
  Receive Date: 20210128
  Receipt Date: 20210128
  Transmission Date: 20210419
  Serious: No
  Sender: FDA-Public Use
  Company Number: US-PERRIGO-20US006863

PATIENT
  Sex: Female
  Weight: 60.77 kg

DRUGS (3)
  1. TRETINOIN 0.05% CREAM (2L4) [Suspect]
     Active Substance: TRETINOIN
     Indication: SKIN WRINKLING
     Dosage: SMALL AMOUNT, QOD
     Route: 061
     Dates: start: 2018, end: 2018
  2. BONIVA [Concomitant]
     Active Substance: IBANDRONATE SODIUM
     Indication: OSTEOPOROSIS
     Dosage: UNK, ONCE A MONTH
     Route: 065
     Dates: start: 2016
  3. TRETINOIN 0.05% CREAM (2L4) [Suspect]
     Active Substance: TRETINOIN
     Dosage: SMALL AMOUNT, NIGHTLY
     Route: 061
     Dates: start: 2018

REACTIONS (2)
  - Application site exfoliation [Not Recovered/Not Resolved]
  - Drug ineffective for unapproved indication [Unknown]

NARRATIVE: CASE EVENT DATE: 2018
